FAERS Safety Report 5534165-5 (Version None)
Quarter: 2007Q4

REPORT INFORMATION
  Report Type: 
  Country: None (occurrence: None)
  Receive Date: 20071129
  Receipt Date: 20071129
  Transmission Date: 20080405
  Serious: Yes (Hospitalization)
  Sender: FDA-Public Use
  Company Number: None

PATIENT
  Sex: Male
  Weight: 66.5 kg

DRUGS (3)
  1. TEMOZOLOMIDE [Suspect]
     Dosage: 2600 MG
  2. DILANTIN [Concomitant]
  3. FAMOTIDINE [Concomitant]

REACTIONS (1)
  - IDIOPATHIC THROMBOCYTOPENIC PURPURA [None]
